FAERS Safety Report 13380482 (Version 1)
Quarter: 2017Q1

REPORT INFORMATION
  Report Type: Spontaneous
  Country: US (occurrence: US)
  Receive Date: 20170329
  Receipt Date: 20170329
  Transmission Date: 20170429
  Serious: No
  Sender: FDA-Public Use
  Company Number: US-ASTRAZENECA-2017SE32120

PATIENT
  Sex: Male
  Weight: 87.1 kg

DRUGS (1)
  1. SYMBICORT [Suspect]
     Active Substance: BUDESONIDE\FORMOTEROL FUMARATE DIHYDRATE
     Indication: CHRONIC OBSTRUCTIVE PULMONARY DISEASE
     Dosage: 80/4.5MCG 2 PUFFS,TWO TIMES A DAY
     Route: 055
     Dates: start: 201701

REACTIONS (4)
  - Lip swelling [Unknown]
  - Dysphonia [Unknown]
  - Intentional product misuse [Unknown]
  - Asthma [Unknown]
